FAERS Safety Report 12537668 (Version 1)
Quarter: 2016Q3

REPORT INFORMATION
  Report Type: Spontaneous
  Country: GB (occurrence: GB)
  Receive Date: 20160707
  Receipt Date: 20160707
  Transmission Date: 20161109
  Serious: Yes (Disabling)
  Sender: FDA-Public Use
  Company Number: GB-PFIZER INC-2016330552

PATIENT
  Age: 85 Year
  Sex: Female
  Weight: 49 kg

DRUGS (8)
  1. LYRICA [Suspect]
     Active Substance: PREGABALIN
     Dosage: UNK
     Route: 048
     Dates: start: 20160601, end: 20160612
  2. ADCAL /07357001/ [Concomitant]
     Dosage: 1 DF, 2X/DAY (MORNING AND LUNCHTIME)
     Dates: start: 20151231
  3. AMITRIPTYLINE HYDROCHLORIDE. [Concomitant]
     Active Substance: AMITRIPTYLINE HYDROCHLORIDE
     Dosage: TAKE ONE OR TWO AT NIGHT
     Dates: start: 20160623
  4. MICONAZOLE. [Concomitant]
     Active Substance: MICONAZOLE
     Dosage: UNK (APPLY 2-3 TIMES A DAY)
     Dates: start: 20160511, end: 20160518
  5. HYPROMELLOSE [Concomitant]
     Active Substance: HYPROMELLOSES
     Dosage: 1 GTT, ONE DROP AS NEEDED
     Dates: start: 20151231
  6. PRAVASTATIN. [Concomitant]
     Active Substance: PRAVASTATIN
     Dosage: 1 DF, 1X/DAY (AT NIGHT)
     Dates: start: 20151231
  7. PARACETAMOL [Concomitant]
     Active Substance: ACETAMINOPHEN
     Dosage: TAKE 1 OR 2 4 TIMES/DAY
     Dates: start: 20160407, end: 20160505
  8. GAVISCON ADVANCE [Concomitant]
     Active Substance: POTASSIUM BICARBONATE\SODIUM ALGINATE
     Dosage: 5ML OR 10ML 4 TIMES/DAY
     Dates: start: 20151231

REACTIONS (2)
  - Muscular weakness [Recovered/Resolved]
  - Photopsia [Recovered/Resolved]

NARRATIVE: CASE EVENT DATE: 20160612
